FAERS Safety Report 10457468 (Version 3)
Quarter: 2014Q3

REPORT INFORMATION
  Report Type: Spontaneous
  Country: US (occurrence: US)
  Receive Date: 20140916
  Receipt Date: 20140930
  Transmission Date: 20150326
  Serious: Yes (Life-Threatening, Hospitalization, Other)
  Sender: FDA-Public Use
  Company Number: CHPA2010US12607

PATIENT
  Age: 85 Year
  Sex: Female

DRUGS (2)
  1. VOLTAREN [Suspect]
     Active Substance: DICLOFENAC SODIUM
     Indication: THROMBOSIS
     Dosage: UNK
     Route: 061
     Dates: start: 20100625, end: 201006
  2. VOLTAREN [Suspect]
     Active Substance: DICLOFENAC SODIUM
     Indication: OFF LABEL USE

REACTIONS (15)
  - Eating disorder [Unknown]
  - Ear congestion [Unknown]
  - Swelling face [Unknown]
  - Malaise [Unknown]
  - Drug ineffective for unapproved indication [Unknown]
  - Gastrointestinal disorder [Unknown]
  - Pneumonia [Unknown]
  - Somnolence [Recovered/Resolved]
  - Infection [Unknown]
  - Drug administered at inappropriate site [Unknown]
  - Peripheral swelling [Unknown]
  - Erythema [Unknown]
  - Sinus disorder [Not Recovered/Not Resolved]
  - Skin discolouration [Unknown]
  - Dizziness [Unknown]

NARRATIVE: CASE EVENT DATE: 20100625
